FAERS Safety Report 17416370 (Version 2)
Quarter: 2020Q2

REPORT INFORMATION
  Report Type: Spontaneous
  Country: US (occurrence: US)
  Receive Date: 20200213
  Receipt Date: 20200408
  Transmission Date: 20200713
  Serious: No
  Sender: FDA-Public Use
  Company Number: US-TEVA-2020-US-1184782

PATIENT
  Age: 15 Year
  Sex: Male

DRUGS (1)
  1. TESTOSTERONE. [Suspect]
     Active Substance: TESTOSTERONE
     Indication: KLINEFELTER^S SYNDROME
     Route: 065

REACTIONS (2)
  - Product administered at inappropriate site [Unknown]
  - Hair growth abnormal [Unknown]
